FAERS Safety Report 23911265 (Version 2)
Quarter: 2024Q2

REPORT INFORMATION
  Report Type: Spontaneous
  Country: JP (occurrence: JP)
  Receive Date: 20240528
  Receipt Date: 20240608
  Transmission Date: 20240716
  Serious: Yes (Life-Threatening, Hospitalization)
  Sender: FDA-Public Use
  Company Number: JP-TEVA-VS-3201126

PATIENT
  Age: 14 Year
  Sex: Female

DRUGS (5)
  1. PREDNISOLONE [Suspect]
     Active Substance: PREDNISOLONE
     Indication: Nephrotic syndrome
     Dosage: EVERY OTHER DAY FOR 4?WEEKS.
     Route: 048
  2. PREDNISOLONE [Suspect]
     Active Substance: PREDNISOLONE
     Indication: Nephrotic syndrome
     Route: 048
  3. ANTITHROMBIN III HUMAN [Suspect]
     Active Substance: ANTITHROMBIN III HUMAN
     Indication: Hypercoagulation
     Route: 065
  4. DIPYRIDAMOLE [Suspect]
     Active Substance: DIPYRIDAMOLE
     Indication: Thrombosis prophylaxis
     Route: 065
  5. DIPYRIDAMOLE [Suspect]
     Active Substance: DIPYRIDAMOLE
     Indication: Thrombosis prophylaxis
     Dosage: INITIAL DOSAGE NOT STATED
     Route: 065

REACTIONS (5)
  - Embolism [Unknown]
  - Cerebral infarction [Recovered/Resolved]
  - Vasogenic cerebral oedema [Recovered/Resolved]
  - Drug ineffective [Unknown]
  - Cerebral venous sinus thrombosis [Recovered/Resolved]
